FAERS Safety Report 23038108 (Version 1)
Quarter: 2023Q4

REPORT INFORMATION
  Report Type: Spontaneous
  Country: US (occurrence: US)
  Receive Date: 20231006
  Receipt Date: 20231006
  Transmission Date: 20240110
  Serious: No
  Sender: FDA-Public Use
  Company Number: US-009507513-2309USA007598

PATIENT
  Age: 80 Year

DRUGS (3)
  1. VERQUVO [Suspect]
     Active Substance: VERICIGUAT
     Dosage: 2.5MG/ UNKNOWN
     Route: 048
  2. ENTRESTO [Concomitant]
     Active Substance: SACUBITRIL\VALSARTAN
     Dosage: UNK
  3. FARXIGA [Concomitant]
     Active Substance: DAPAGLIFLOZIN PROPANEDIOL
     Dosage: UNK

REACTIONS (2)
  - Dizziness [Unknown]
  - Blood pressure systolic decreased [Unknown]
